FAERS Safety Report 15640361 (Version 1)
Quarter: 2018Q4

REPORT INFORMATION
  Report Type: Spontaneous
  Country: US (occurrence: US)
  Receive Date: 20181120
  Receipt Date: 20181120
  Transmission Date: 20190205
  Serious: Yes (Other)
  Sender: FDA-Public Use
  Company Number: PHHY2018US152437

PATIENT
  Age: 28 Year
  Sex: Male

DRUGS (3)
  1. DIAMORPHINE HYDROCHLORIDE [Suspect]
     Active Substance: DIACETYLMORPHINE HYDROCHLORIDE
     Indication: PRODUCT USED FOR UNKNOWN INDICATION
     Route: 065
  2. METHADONE [Suspect]
     Active Substance: METHADONE HYDROCHLORIDE
     Indication: PRODUCT USED FOR UNKNOWN INDICATION
     Route: 065
  3. QUETIAPINE. [Suspect]
     Active Substance: QUETIAPINE
     Indication: PRODUCT USED FOR UNKNOWN INDICATION
     Route: 065

REACTIONS (6)
  - Muscular weakness [Unknown]
  - Hypoaesthesia [Unknown]
  - Drug abuse [Unknown]
  - Unresponsive to stimuli [Unknown]
  - Brachial plexopathy [Unknown]
  - Overdose [Unknown]
